FAERS Safety Report 9459730 (Version 1)
Quarter: 2013Q3

REPORT INFORMATION
  Report Type: Spontaneous
  Country: IT (occurrence: FR)
  Receive Date: 20130815
  Receipt Date: 20130815
  Transmission Date: 20140515
  Serious: Yes (Hospitalization, Other)
  Sender: FDA-Public Use
  Company Number: FR-FRI-1000047623

PATIENT
  Age: 75 Year
  Sex: Male

DRUGS (8)
  1. NEBIVOLOL [Suspect]
     Indication: CARDIAC FAILURE
     Dosage: 5 MG
     Route: 048
     Dates: end: 20130307
  2. NEBIVOLOL [Suspect]
     Dosage: 2.5 MG
     Route: 048
     Dates: start: 20130308
  3. XATRAL [Suspect]
     Indication: PROSTATIC ADENOMA
     Dosage: 10 MG
     Route: 048
     Dates: end: 20130311
  4. COVERSYL [Suspect]
     Indication: HYPERTENSION
     Dosage: 15 MG
     Route: 048
     Dates: end: 20130307
  5. ESCITALOPRAM [Suspect]
     Dosage: 10 MG
     Route: 048
  6. PERINDOPRIL [Concomitant]
     Indication: HYPERTENSION
     Dosage: 12 MG
     Dates: start: 20130308, end: 20130311
  7. KARDEGIC [Concomitant]
     Indication: HYPERCHOLESTEROLAEMIA
     Dosage: 75 MG
     Route: 048
  8. TAHOR [Concomitant]
     Dosage: 40 MG
     Route: 048

REACTIONS (3)
  - Malaise [Recovered/Resolved]
  - Loss of consciousness [Recovered/Resolved]
  - Orthostatic hypotension [Recovered/Resolved]
